FAERS Safety Report 10470594 (Version 2)
Quarter: 2014Q4

REPORT INFORMATION
  Report Type: Spontaneous
  Country: US (occurrence: US)
  Receive Date: 20140923
  Receipt Date: 20141030
  Transmission Date: 20150528
  Serious: Yes (Other)
  Sender: FDA-Public Use
  Company Number: US-TEVA-509798USA

PATIENT
  Age: 79 Year
  Sex: Male

DRUGS (3)
  1. TOPOTECAN [Suspect]
     Active Substance: TOPOTECAN\TOPOTECAN HYDROCHLORIDE
     Indication: OESOPHAGEAL CARCINOMA
     Dosage: THREE COURSES
     Route: 065
  2. CARBOPLATIN. [Suspect]
     Active Substance: CARBOPLATIN
     Indication: OESOPHAGEAL CARCINOMA
     Dosage: INDUCTION CHEMOTHERAPY; THEN SIX CYCLES; THEN ONE FURTHER COURSE
     Route: 065
  3. ETOPOSIDE. [Suspect]
     Active Substance: ETOPOSIDE
     Indication: OESOPHAGEAL CARCINOMA
     Dosage: INDUCTION CHEMOTHERAPY; THEN SIX CYCLES; THEN ONE FURTHER COURSE
     Route: 065

REACTIONS (4)
  - Oesophageal mass [Unknown]
  - Lymphadenopathy [Unknown]
  - Fatigue [Unknown]
  - Anaemia [Unknown]
